FAERS Safety Report 15073325 (Version 1)
Quarter: 2018Q2

REPORT INFORMATION
  Report Type: Spontaneous
  Country: ES (occurrence: ES)
  Receive Date: 20180627
  Receipt Date: 20180627
  Transmission Date: 20180711
  Serious: Yes (Hospitalization, Other)
  Sender: FDA-Public Use
  Company Number: PHHY2017ES203986

PATIENT
  Age: 14 Year
  Sex: Female

DRUGS (6)
  1. HALOPERIDOL. [Suspect]
     Active Substance: HALOPERIDOL
     Indication: PRODUCT USED FOR UNKNOWN INDICATION
     Dosage: BETWEEN 1 MG/DAY AND 3 MG/DAY
     Route: 065
  2. SODIUM OXYBATE. [Suspect]
     Active Substance: SODIUM OXYBATE
     Indication: NARCOLEPSY
     Dosage: LOW DOSE
     Route: 065
  3. RISPERIDONE. [Suspect]
     Active Substance: RISPERIDONE
     Indication: HALLUCINATION
     Dosage: 0.5 MG, QD
     Route: 065
  4. MODAFINIL. [Suspect]
     Active Substance: MODAFINIL
     Indication: NARCOLEPSY
     Dosage: 100 MG, QD
     Route: 065
  5. HALOPERIDOL. [Suspect]
     Active Substance: HALOPERIDOL
     Dosage: 1 MG, QD
     Route: 065
  6. SODIUM OXYBATE. [Suspect]
     Active Substance: SODIUM OXYBATE
     Indication: PRODUCT USED FOR UNKNOWN INDICATION
     Dosage: 4 MG, QD
     Route: 065

REACTIONS (11)
  - Hyperprolactinaemia [Unknown]
  - Cataplexy [Unknown]
  - Suicidal ideation [Recovered/Resolved]
  - Somnolence [Unknown]
  - Weight increased [Unknown]
  - Irritability [Recovered/Resolved]
  - Abnormal behaviour [Recovered/Resolved]
  - Delusion [Unknown]
  - Dysphoria [Recovered/Resolved]
  - Hallucination, auditory [Recovered/Resolved]
  - Galactorrhoea [Unknown]

NARRATIVE: CASE EVENT DATE: 201305
